FAERS Safety Report 20074586 (Version 5)
Quarter: 2024Q4

REPORT INFORMATION
  Report Type: Spontaneous
  Country: DE (occurrence: DE)
  Receive Date: 20211116
  Receipt Date: 20241204
  Transmission Date: 20250115
  Serious: Yes (Other)
  Sender: TORRENT PHARMA INC.
  Company Number: None

PATIENT
  Age: 53 Year
  Sex: Female

DRUGS (6)
  1. RISPERIDONE [Suspect]
     Active Substance: RISPERIDONE
     Indication: Hallucination
     Route: 048
     Dates: start: 20210601, end: 20210627
  2. PREGABALIN [Suspect]
     Active Substance: PREGABALIN
     Indication: Neuralgia
     Dosage: 25-150 MG, 150 MILLIGRAM, 1/DAY
     Route: 048
     Dates: start: 20210628, end: 20210630
  3. METAMIZOLE [Suspect]
     Active Substance: METAMIZOLE
     Indication: Neuralgia
     Dosage: 2000 MILLIGRAM, 1/DAY
     Route: 048
     Dates: start: 20210629, end: 20210713
  4. TRAMADOL [Suspect]
     Active Substance: TRAMADOL
     Indication: Product used for unknown indication
     Dosage: 50 MILLIGRAM, 1/DAY
     Route: 048
     Dates: start: 20210805
  5. METOCLOPRAMIDE [Suspect]
     Active Substance: METOCLOPRAMIDE
     Indication: Neuralgia
     Dosage: 30 MILLIGRAM, 1/DAY
     Route: 048
     Dates: start: 20210806, end: 20210829
  6. DEXAMETHASONE [Suspect]
     Active Substance: DEXAMETHASONE
     Indication: Neuralgia
     Dosage: 2 MILLIGRAM, 1/DAY
     Route: 048
     Dates: start: 20210601

REACTIONS (3)
  - Gamma-glutamyltransferase increased [Recovering/Resolving]
  - Alanine aminotransferase increased [Recovering/Resolving]
  - Aspartate aminotransferase increased [Recovering/Resolving]

NARRATIVE: CASE EVENT DATE: 20210801
